FAERS Safety Report 13079008 (Version 4)
Quarter: 2018Q1

REPORT INFORMATION
  Report Type: Report from Study
  Country: BR (occurrence: BR)
  Receive Date: 20170102
  Receipt Date: 20180302
  Transmission Date: 20180508
  Serious: Yes (Hospitalization, Other)
  Sender: FDA-Public Use
  Company Number: PHHY2016BR180567

PATIENT
  Age: 75 Year
  Sex: Female
  Weight: 53 kg

DRUGS (8)
  1. FUROSEMIDE. [Concomitant]
     Active Substance: FUROSEMIDE
     Indication: BLOOD PRESSURE ABNORMAL
     Dosage: 20 MG, QD
     Route: 065
  2. ACLASTA [Suspect]
     Active Substance: ZOLEDRONIC ACID
     Indication: OSTEOPOROSIS
     Dosage: 5 MG, Q12MO
     Route: 042
     Dates: start: 20150929, end: 20150929
  3. DULOXETINE. [Concomitant]
     Active Substance: DULOXETINE
     Indication: DEPRESSION
     Dosage: 2 DF, UNK
     Route: 065
  4. SPIRONOLACTONE. [Concomitant]
     Active Substance: SPIRONOLACTONE
     Indication: PRODUCT USED FOR UNKNOWN INDICATION
     Dosage: 25 OT, QD
     Route: 065
     Dates: start: 201612
  5. ENALAPRIL [Concomitant]
     Active Substance: ENALAPRIL
     Indication: PRODUCT USED FOR UNKNOWN INDICATION
     Dosage: 1 DF, QD
     Route: 065
  6. BUPROPION. [Concomitant]
     Active Substance: BUPROPION
     Indication: DEPRESSION
     Dosage: 150 MG, BID
     Route: 065
  7. CARVEDILOL. [Concomitant]
     Active Substance: CARVEDILOL
     Indication: CARDIAC DISORDER
     Dosage: 12.5 OT, QD
     Route: 065
  8. ZOPIX [Concomitant]
     Indication: DEPRESSION
     Dosage: 5 MG, QD (SINCE A LONG TIME AGO)
     Route: 065

REACTIONS (8)
  - Weight decreased [Unknown]
  - Femur fracture [Recovered/Resolved]
  - Cardiac disorder [Unknown]
  - Malaise [Recovered/Resolved]
  - Fall [Recovered/Resolved]
  - Diverticulitis [Recovered/Resolved]
  - Pleural effusion [Recovered/Resolved]
  - General physical health deterioration [Unknown]

NARRATIVE: CASE EVENT DATE: 201612
